FAERS Safety Report 9806883 (Version 1)
Quarter: 2014Q1

REPORT INFORMATION
  Report Type: Spontaneous
  Country: US (occurrence: US)
  Receive Date: 20140109
  Receipt Date: 20140109
  Transmission Date: 20141002
  Serious: No
  Sender: FDA-Public Use
  Company Number: US-ABBVIE-13P-163-1124111-00

PATIENT
  Sex: 0
  Weight: 81.27 kg

DRUGS (6)
  1. VICODIN [Suspect]
     Indication: PAIN
  2. EFFEXOR [Suspect]
     Indication: VICTIM OF SEXUAL ABUSE
     Dates: start: 1993
  3. ZOLOFT [Suspect]
     Indication: DEPRESSION
     Dates: start: 1993
  4. WELLBUTRIN [Suspect]
     Indication: DEPRESSION
     Dates: start: 1993
  5. PROZAC [Suspect]
     Indication: DEPRESSION
     Dates: start: 1993
  6. PHENTERMINE [Suspect]
     Indication: APPETITE DISORDER

REACTIONS (10)
  - Abnormal dreams [Recovered/Resolved]
  - Crying [Recovered/Resolved]
  - Insomnia [Unknown]
  - Therapeutic response unexpected [Unknown]
  - Weight increased [Unknown]
  - Hypertension [Unknown]
  - Blood cholesterol abnormal [Unknown]
  - Diabetes mellitus [Unknown]
  - Depression [Unknown]
  - Drug ineffective [Unknown]
